FAERS Safety Report 4612838-6 (Version None)
Quarter: 2005Q1

REPORT INFORMATION
  Report Type: 
  Country: None (occurrence: None)
  Receive Date: 20050318
  Receipt Date: 20050311
  Transmission Date: 20050727
  Serious: Yes (Disabling)
  Sender: FDA-Public Use
  Company Number: US-JNJFOC-20050106829

PATIENT
  Age: 84 Year
  Sex: Female

DRUGS (11)
  1. LEVAQUIN [Suspect]
  2. LEVAQUIN [Suspect]
  3. LEVAQUIN [Suspect]
     Indication: PNEUMONIA
  4. CORTISONE [Concomitant]
  5. FOSAMAX [Concomitant]
     Route: 049
  6. FOLTX [Concomitant]
  7. BENICAR [Concomitant]
     Route: 049
  8. PLAQUENIL [Concomitant]
  9. PREDNISONE [Concomitant]
     Route: 049
  10. COUMADIN [Concomitant]
     Route: 049
  11. PROTONIX [Concomitant]
     Route: 049

REACTIONS (5)
  - ARTHRALGIA [None]
  - CARTILAGE INJURY [None]
  - OEDEMA PERIPHERAL [None]
  - PAIN IN EXTREMITY [None]
  - TENDON RUPTURE [None]
